FAERS Safety Report 9859188 (Version 1)
Quarter: 2014Q1

REPORT INFORMATION
  Report Type: Spontaneous
  Country: US (occurrence: US)
  Receive Date: 20140131
  Receipt Date: 20140131
  Transmission Date: 20141002
  Serious: Yes (Other)
  Sender: FDA-Public Use
  Company Number: US-JNJFOC-20140112982

PATIENT
  Age: 64 Year
  Sex: Male

DRUGS (1)
  1. CLADRIBINE [Suspect]
     Indication: HAIRY CELL LEUKAEMIA
     Dosage: AS A 7-DAY CONTINUOUS INTRAVENOUS INFUSION
     Route: 042

REACTIONS (1)
  - Prostate cancer [Unknown]
